FAERS Safety Report 5273964-4 (Version None)
Quarter: 2007Q1

REPORT INFORMATION
  Report Type: 
  Country: None (occurrence: None)
  Receive Date: 20070323
  Receipt Date: 20070319
  Transmission Date: 20070707
  Serious: Yes (Other)
  Sender: FDA-Public Use
  Company Number: N008954

PATIENT
  Age: 17 Year
  Sex: Male

DRUGS (4)
  1. WELLBUTRIN [Suspect]
     Indication: DRUG USE FOR UNKNOWN INDICATION
     Route: 065
     Dates: start: 20060101
  2. METHAMPHETAMINE HYDROCHLORIDE [Suspect]
  3. CONCERTA [Suspect]
  4. FLONASE [Suspect]

REACTIONS (6)
  - ABNORMAL BEHAVIOUR [None]
  - DEMENTIA [None]
  - DISTURBANCE IN ATTENTION [None]
  - DRUG ABUSER [None]
  - ILL-DEFINED DISORDER [None]
  - OVERDOSE [None]
